FAERS Safety Report 9295141 (Version 1)
Quarter: 2013Q1

REPORT INFORMATION
  Report Type: Spontaneous
  Country: US (occurrence: None)
  Receive Date: 20121227
  Receipt Date: 20121227
  Transmission Date: 20140127
  Serious: No
  Sender: FDA-Public Use
  Company Number: PHEH2012US019601

PATIENT
  Age: 38 Year
  Sex: Female

DRUGS (4)
  1. AFINITOR [Suspect]
     Indication: THROMBOCYTOPENIA
     Route: 048
  2. IRON (IRON) [Concomitant]
  3. CALADRYL (CALAMINE, DIPHENYDRAMINE HYDROCHLORIDE) [Concomitant]
  4. CORTISPORIN CREAM (HYDROCORTISONE ACETATE, NEOMYCIN SULFATE, POLYMYXIN B SULFATE) [Concomitant]

REACTIONS (2)
  - Rash [None]
  - Aphthous stomatitis [None]
